FAERS Safety Report 6227564-X (Version None)
Quarter: 2009Q2

REPORT INFORMATION
  Report Type: 
  Country: None (occurrence: None)
  Receive Date: 20090612
  Receipt Date: 20090602
  Transmission Date: 20091009
  Serious: Yes (Other)
  Sender: FDA-Public Use
  Company Number: KR-PFIZER INC-2009222256

PATIENT
  Age: 52 Year

DRUGS (1)
  1. SUNITINIB MALATE [Suspect]
     Indication: RETROPERITONEAL NEOPLASM
     Dosage: 37.5 MG, 1X/DAY

REACTIONS (3)
  - ASTHENIA [None]
  - MICROANGIOPATHIC HAEMOLYTIC ANAEMIA [None]
  - THROMBOCYTOPENIA [None]
